FAERS Safety Report 9049131 (Version 1)
Quarter: 2013Q1

REPORT INFORMATION
  Report Type: Spontaneous
  Country: US (occurrence: None)
  Receive Date: 20130129
  Receipt Date: 20130129
  Transmission Date: 20140127
  Serious: Yes (Other)
  Sender: FDA-Public Use
  Company Number: None

PATIENT
  Sex: Female

DRUGS (1)
  1. NORPRAMIN [Suspect]
     Dosage: 2 OR 3  QD   (150 TOTAL)

REACTIONS (2)
  - Drug ineffective [None]
  - Product substitution issue [None]
